FAERS Safety Report 18096521 (Version 2)
Quarter: 2024Q3

REPORT INFORMATION
  Report Type: Spontaneous
  Country: FR (occurrence: FR)
  Receive Date: 20200731
  Receipt Date: 20240722
  Transmission Date: 20241016
  Serious: Yes (Hospitalization, Other)
  Sender: AUROBINDO
  Company Number: FR-ORACLE-2009AL006986

PATIENT
  Age: 54 Year
  Sex: Female

DRUGS (10)
  1. CITALOPRAM [Suspect]
     Active Substance: CITALOPRAM\CITALOPRAM HYDROBROMIDE
     Indication: Depression
     Dosage: 20 MILLIGRAM, ONCE A DAY
     Route: 065
  2. CITALOPRAM [Suspect]
     Active Substance: CITALOPRAM\CITALOPRAM HYDROBROMIDE
     Indication: Major depression
  3. CLORAZEPATE DIPOTASSIUM [Suspect]
     Active Substance: CLORAZEPATE DIPOTASSIUM
     Indication: Product used for unknown indication
     Dosage: 100 MILLIGRAM, ONCE A DAY
     Route: 065
  4. CLORAZEPATE DIPOTASSIUM [Suspect]
     Active Substance: CLORAZEPATE DIPOTASSIUM
     Dosage: 20 MILLIGRAM, ONCE A DAY
     Route: 065
  5. CYAMEMAZINE [Suspect]
     Active Substance: CYAMEMAZINE
     Indication: Depression
     Dosage: 25 MILLIGRAM, ONCE A DAY
     Route: 065
  6. CYAMEMAZINE [Suspect]
     Active Substance: CYAMEMAZINE
     Indication: Major depression
  7. ACAMPROSATE [Suspect]
     Active Substance: ACAMPROSATE
     Indication: Product used for unknown indication
     Dosage: 1332 MILLIGRAM, ONCE A DAY
     Route: 065
  8. NICARDIPINE [Concomitant]
     Active Substance: NICARDIPINE
     Indication: Essential hypertension
     Dosage: 50 MILLIGRAM, ONCE A DAY
     Route: 065
  9. THIAMINE [Concomitant]
     Active Substance: THIAMINE
     Indication: Product used for unknown indication
     Dosage: 1000 MILLIGRAM, DAILY
     Route: 048
  10. PYRIDOXINE [Concomitant]
     Active Substance: PYRIDOXINE
     Indication: Product used for unknown indication
     Dosage: 500 MILLIGRAM, DAILY
     Route: 048

REACTIONS (16)
  - Anxiety [Recovered/Resolved]
  - Mutism [Recovered/Resolved]
  - Disorientation [Recovered/Resolved]
  - Negativism [Recovered/Resolved]
  - Akinesia [Recovered/Resolved]
  - Muscle rigidity [Recovered/Resolved]
  - Patient elopement [Recovered/Resolved]
  - Flight of ideas [Recovered/Resolved]
  - Incoherent [Recovered/Resolved]
  - Catatonia [Recovered/Resolved]
  - Visual impairment [Recovered/Resolved]
  - Mental disorder [Recovered/Resolved]
  - Agitation [Recovered/Resolved]
  - Bipolar II disorder [Recovered/Resolved]
  - Withdrawal syndrome [Recovered/Resolved]
  - Treatment noncompliance [Recovered/Resolved]
